FAERS Safety Report 7337266-4 (Version None)
Quarter: 2011Q1

REPORT INFORMATION
  Report Type: 
  Country: None (occurrence: None)
  Receive Date: 20110224
  Receipt Date: 20110217
  Transmission Date: 20110831
  Serious: Yes (Hospitalization)
  Sender: FDA-Public Use
  Company Number: 2011AC000017

PATIENT
  Sex: Female

DRUGS (19)
  1. PHENYTOIN [Concomitant]
  2. LEVABUTEROL [Concomitant]
  3. ACETAMINOPHEN [Concomitant]
  4. DIGOXIN [Suspect]
     Indication: ATRIAL FIBRILLATION
     Dosage: 0.25 MG;QD;PO
     Route: 048
     Dates: start: 20071016, end: 20080507
  5. ENOXAPARIN [Concomitant]
  6. NIFEDIPINE [Concomitant]
  7. POTASSIUM CHLORIDE [Concomitant]
  8. WARFARIN SODIUM [Concomitant]
  9. PEPCID [Concomitant]
  10. DILTIAZEM [Concomitant]
  11. LABETALOL [Concomitant]
  12. LISINOPRIL [Concomitant]
  13. NORVASC [Concomitant]
  14. PROTONIX [Concomitant]
  15. HYDROCHLOROTHIAZIDE [Concomitant]
  16. ASPIRIN [Concomitant]
  17. PANTOPRAZOLE [Concomitant]
  18. HYDRALAZINE [Concomitant]
  19. DILAUDID [Concomitant]

REACTIONS (34)
  - OESOPHAGITIS [None]
  - SENSORY LOSS [None]
  - LOSS OF CONSCIOUSNESS [None]
  - CONFUSIONAL STATE [None]
  - DYSPNOEA [None]
  - HYPERTENSION [None]
  - HYPERCHOLESTEROLAEMIA [None]
  - AZOTAEMIA [None]
  - ANAEMIA [None]
  - ATRIOVENTRICULAR BLOCK COMPLETE [None]
  - HYPOAESTHESIA [None]
  - TOXICITY TO VARIOUS AGENTS [None]
  - BLOOD PRESSURE INCREASED [None]
  - INTERVERTEBRAL DISC SPACE NARROWING [None]
  - ATRIOVENTRICULAR BLOCK FIRST DEGREE [None]
  - VOMITING [None]
  - BALANCE DISORDER [None]
  - RENAL CYST [None]
  - ADRENAL NEOPLASM [None]
  - CATARACT [None]
  - RHYTHM IDIOVENTRICULAR [None]
  - MEMORY IMPAIRMENT [None]
  - FALL [None]
  - PRODUCT QUALITY ISSUE [None]
  - ASTHENIA [None]
  - DIZZINESS [None]
  - BLOOD GLUCOSE INCREASED [None]
  - POST PROCEDURAL COMPLICATION [None]
  - PRESYNCOPE [None]
  - SPINAL OSTEOARTHRITIS [None]
  - ELECTROCARDIOGRAM ST-T CHANGE [None]
  - WEIGHT DECREASED [None]
  - DISORIENTATION [None]
  - BRADYCARDIA [None]
